FAERS Safety Report 21411584 (Version 3)
Quarter: 2023Q1

REPORT INFORMATION
  Report Type: Spontaneous
  Country: US (occurrence: US)
  Receive Date: 20221005
  Receipt Date: 20230125
  Transmission Date: 20230418
  Serious: Yes (Other)
  Sender: FDA-Public Use
  Company Number: US-PFIZER INC-2020004797

PATIENT
  Age: 54 Year
  Sex: Male

DRUGS (3)
  1. SUTENT [Suspect]
     Active Substance: SUNITINIB MALATE
     Indication: Metastases to central nervous system
     Dosage: 50 MG, CYCLIC [1 TAB DAILY FOR 14 DAYS, THEN D FOR 7DAY]
  2. SUTENT [Suspect]
     Active Substance: SUNITINIB MALATE
     Indication: Metastases to kidney
     Dosage: 50 MG, CYCLIC (1 CAPSULE BY MOUTH DAILY FOR 2 WEEKS, OFF 1 WEEK)
     Route: 048
  3. SUTENT [Suspect]
     Active Substance: SUNITINIB MALATE
     Indication: Bone cancer
     Dosage: 37.5 MG

REACTIONS (1)
  - Nephrolithiasis [Unknown]
